FAERS Safety Report 8799427 (Version 2)
Quarter: 2012Q4

REPORT INFORMATION
  Report Type: 
  Country: US (occurrence: US)
  Receive Date: 20120920
  Receipt Date: 20121008
  Transmission Date: 20130627
  Serious: Yes (Hospitalization, Other)
  Sender: FDA-Public Use
  Company Number: US-009507513-1209USA004351

PATIENT
  Age: 65 None
  Sex: Female

DRUGS (10)
  1. PRINIVIL [Suspect]
     Indication: HYPERTENSION
     Dosage: 10 mg, UNK
     Route: 048
     Dates: end: 20111114
  2. PRINIVIL [Suspect]
     Indication: HYPERTENSION
     Dosage: 20 mg, UNK
     Route: 048
     Dates: start: 20120516, end: 20120523
  3. PRINIVIL [Suspect]
     Dosage: UNK UNK, prn
     Route: 048
     Dates: start: 20111114
  4. CLONIDINE [Concomitant]
  5. PROPRANOLOL HYDROCHLORIDE [Concomitant]
  6. AMLODIPINE [Concomitant]
  7. TAPAZOLE [Concomitant]
  8. LORATADINE [Concomitant]
  9. VENTOLIN (ALBUTEROL) [Concomitant]
  10. TRAMADOL HYDROCHLORIDE [Concomitant]

REACTIONS (9)
  - Obstructive airways disorder [Recovered/Resolved]
  - Swollen tongue [Recovered/Resolved]
  - Swelling [Unknown]
  - Pneumothorax [Recovering/Resolving]
  - Tracheostomy [Unknown]
  - Tooth loss [Not Recovered/Not Resolved]
  - Weight increased [Unknown]
  - Aspiration pleural cavity [Unknown]
  - Inappropriate schedule of drug administration [Unknown]
